FAERS Safety Report 18261646 (Version 2)
Quarter: 2020Q3

REPORT INFORMATION
  Report Type: Report from Study
  Country: US (occurrence: US)
  Receive Date: 20200914
  Receipt Date: 20200916
  Transmission Date: 20201103
  Serious: Yes (Life-Threatening)
  Sender: FDA-Public Use
  Company Number: NVSC2020US175023

PATIENT
  Age: 33 Year
  Sex: Female

DRUGS (72)
  1. SUBLIMAZE [Suspect]
     Active Substance: FENTANYL CITRATE
     Indication: PAIN
     Dosage: STRENGTH: 2,500 MCG IN 50 ML INFUSION
     Route: 041
     Dates: start: 20200620, end: 20200629
  2. LOVENOX [Concomitant]
     Active Substance: ENOXAPARIN SODIUM
     Dosage: 30 MG
     Route: 065
     Dates: start: 20200619, end: 20200619
  3. COLACE [Concomitant]
     Active Substance: DOCUSATE SODIUM
     Dosage: 100 MG
     Route: 065
     Dates: start: 20200621, end: 20200624
  4. VERSED [Concomitant]
     Active Substance: MIDAZOLAM HYDROCHLORIDE
     Dosage: 100 MG
     Route: 065
     Dates: start: 20200620, end: 20200628
  5. LASIX [Concomitant]
     Active Substance: FUROSEMIDE
     Dosage: 40 MG
     Route: 065
     Dates: start: 20200621, end: 20200621
  6. LACTATED RINGERS SOLUTION [Concomitant]
     Active Substance: CALCIUM CHLORIDE\POTASSIUM CHLORIDE\SODIUM CHLORIDE\SODIUM LACTATE
     Indication: PROPHYLAXIS
     Dosage: UNK
     Route: 065
     Dates: start: 20200613, end: 20200613
  7. MAGNESIUM SULFATE. [Concomitant]
     Active Substance: MAGNESIUM SULFATE
     Indication: PROPHYLAXIS
     Dosage: 2 G IN 50 ML IVPB PREMIX
     Route: 065
     Dates: start: 20200618, end: 20200618
  8. REGLAN [Concomitant]
     Active Substance: METOCLOPRAMIDE HYDROCHLORIDE
     Indication: NAUSEA
     Dosage: UNK
     Route: 065
     Dates: start: 20200613, end: 20200613
  9. ROXICODONE [Concomitant]
     Active Substance: OXYCODONE HYDROCHLORIDE
     Indication: PAIN
     Dosage: UNK
     Route: 065
     Dates: start: 20200625, end: 20200627
  10. VANCOCIN [Concomitant]
     Active Substance: VANCOMYCIN HYDROCHLORIDE
     Indication: PNEUMONIA
     Dosage: UNK
     Route: 065
     Dates: start: 20200625, end: 20200625
  11. ZEMURON [Suspect]
     Active Substance: ROCURONIUM BROMIDE
     Dosage: 400 MG
     Route: 065
     Dates: start: 20200621, end: 20200624
  12. ZEMURON [Suspect]
     Active Substance: ROCURONIUM BROMIDE
     Dosage: 100 MG
     Route: 065
     Dates: start: 20200624, end: 20200624
  13. ARTIFICIAL TEARS [Concomitant]
     Active Substance: GLYCERIN\HYPROMELLOSES\POLYETHYLENE GLYCOL 400
     Indication: EYE LUBRICATION THERAPY
     Dosage: 1 APPLICATION, UNK
     Route: 065
     Dates: start: 20200621, end: 20200629
  14. LASIX [Concomitant]
     Active Substance: FUROSEMIDE
     Dosage: 40 MG
     Route: 065
     Dates: start: 20200624, end: 20200624
  15. INDOCIN [Concomitant]
     Active Substance: INDOMETHACIN
     Dosage: 100 MG
     Route: 065
     Dates: start: 20200624, end: 20200624
  16. LACTATED RINGERS SOLUTION [Concomitant]
     Active Substance: CALCIUM CHLORIDE\POTASSIUM CHLORIDE\SODIUM CHLORIDE\SODIUM LACTATE
     Dosage: UNK
     Route: 065
     Dates: start: 20200617, end: 20200617
  17. BLINDED NO TREATMENT RECEIVED [Suspect]
     Active Substance: INVESTIGATIONAL PRODUCT
     Indication: COVID-19 PNEUMONIA
     Dosage: CODE NOT BROKEN
     Route: 042
     Dates: start: 20200618
  18. ZEMURON [Suspect]
     Active Substance: ROCURONIUM BROMIDE
     Dosage: 100 MG
     Route: 065
     Dates: start: 20200621, end: 20200621
  19. SUBLIMAZE [Suspect]
     Active Substance: FENTANYL CITRATE
     Dosage: 50 MCG/ML INJECTION 100 MCG
     Route: 041
     Dates: start: 20200622, end: 20200627
  20. LOVENOX [Concomitant]
     Active Substance: ENOXAPARIN SODIUM
     Indication: THROMBOSIS PROPHYLAXIS
     Dosage: 40 MG
     Route: 065
     Dates: start: 20200613, end: 20200614
  21. NOVOLOG [Concomitant]
     Active Substance: INSULIN ASPART
     Indication: TYPE 2 DIABETES MELLITUS
     Dosage: 100 UNITS/ML INJECTION 15 UNITS
     Route: 065
     Dates: start: 20200602, end: 20200724
  22. NOVOLOG [Concomitant]
     Active Substance: INSULIN ASPART
     Dosage: 100 UNITS/ML INJECTION 70 UNITS
     Route: 065
     Dates: start: 20200613, end: 20200613
  23. PEPCID [Concomitant]
     Active Substance: FAMOTIDINE
     Indication: STRESS ULCER
     Dosage: 20 MG, UNK
     Route: 048
     Dates: start: 20200621, end: 20200630
  24. LASIX [Concomitant]
     Active Substance: FUROSEMIDE
     Dosage: 40 MG
     Route: 065
     Dates: start: 20200623, end: 20200623
  25. MAGNESIUM SULFATE. [Concomitant]
     Active Substance: MAGNESIUM SULFATE
     Dosage: 4 G IN 100 ML IVPB PREMIX
     Route: 065
     Dates: start: 20200622, end: 20200622
  26. PLACEBO [Suspect]
     Active Substance: UNSPECIFIED INGREDIENT
     Indication: COVID-19 PNEUMONIA
     Dosage: CODE NOT BROKEN
     Route: 042
     Dates: start: 20200618
  27. ZEMURON [Suspect]
     Active Substance: ROCURONIUM BROMIDE
     Indication: RESPIRATORY FAILURE
     Dosage: UNK
     Route: 065
     Dates: start: 20200620, end: 20200620
  28. ZEMURON [Suspect]
     Active Substance: ROCURONIUM BROMIDE
     Dosage: 100 MG
     Route: 065
     Dates: start: 20200620, end: 20200625
  29. LOVENOX [Concomitant]
     Active Substance: ENOXAPARIN SODIUM
     Dosage: 65 MG
     Route: 065
     Dates: start: 20200618, end: 20200618
  30. NOVOLOG [Concomitant]
     Active Substance: INSULIN ASPART
     Dosage: 100 UNITS/ML INJECTION
     Route: 065
     Dates: start: 20200618, end: 20200618
  31. HUMULIN R [Concomitant]
     Active Substance: INSULIN HUMAN
     Indication: TYPE 2 DIABETES MELLITUS
     Dosage: UNK, STRENGTH: 100 UNITS IN SODIUM CHLORIDE
     Route: 065
     Dates: start: 20200617, end: 20200618
  32. TYLENOL [Concomitant]
     Active Substance: ACETAMINOPHEN
     Indication: PAIN
     Dosage: 650 MG
     Route: 065
     Dates: start: 20200621, end: 20200622
  33. TYLENOL [Concomitant]
     Active Substance: ACETAMINOPHEN
     Dosage: 650 MG
     Route: 065
     Dates: start: 20200624, end: 20200625
  34. COLACE [Concomitant]
     Active Substance: DOCUSATE SODIUM
     Indication: CONSTIPATION
     Dosage: 100 MG
     Route: 065
     Dates: start: 20200620, end: 20200621
  35. VERSED [Concomitant]
     Active Substance: MIDAZOLAM HYDROCHLORIDE
     Indication: RESPIRATORY FAILURE
     Dosage: 2MG/2ML, INJECTION 4 MG
     Route: 065
     Dates: start: 20200620, end: 20200620
  36. VERSED [Concomitant]
     Active Substance: MIDAZOLAM HYDROCHLORIDE
     Dosage: 2MG/2ML, INJECTION 4 MG
     Route: 065
     Dates: start: 20200624, end: 20200624
  37. CELESTONE [Concomitant]
     Active Substance: BETAMETHASONE
     Indication: PREGNANCY
     Dosage: UNK
     Route: 065
     Dates: start: 20200618, end: 20200618
  38. MAGNESIUM SULFATE. [Concomitant]
     Active Substance: MAGNESIUM SULFATE
     Dosage: 2 G IN 50 ML IVPB PREMIX
     Route: 065
     Dates: start: 20200621, end: 20200621
  39. MAGNESIUM SULFATE. [Concomitant]
     Active Substance: MAGNESIUM SULFATE
     Dosage: 2 G IN 50 ML IVPB PREMIX
     Route: 065
     Dates: start: 20200624, end: 20200624
  40. LOVENOX [Concomitant]
     Active Substance: ENOXAPARIN SODIUM
     Dosage: 100 MG
     Route: 065
     Dates: start: 20200620, end: 20200709
  41. TYLENOL [Concomitant]
     Active Substance: ACETAMINOPHEN
     Dosage: 1000 MG
     Route: 065
     Dates: start: 20200625, end: 20200630
  42. VERSED [Concomitant]
     Active Substance: MIDAZOLAM HYDROCHLORIDE
     Dosage: 2 MG
     Route: 065
     Dates: start: 20200620, end: 20200621
  43. PERIACTIN [Concomitant]
     Active Substance: CYPROHEPTADINE HYDROCHLORIDE
     Indication: HEADACHE
     Dosage: 4 MG
     Route: 065
     Dates: start: 20200613, end: 20200614
  44. PERIACTIN [Concomitant]
     Active Substance: CYPROHEPTADINE HYDROCHLORIDE
     Dosage: 4 MG
     Route: 065
     Dates: start: 20200614, end: 20200614
  45. LASIX [Concomitant]
     Active Substance: FUROSEMIDE
     Indication: COVID-19 PNEUMONIA
     Dosage: 20 MG
     Route: 065
     Dates: start: 20200619, end: 20200619
  46. LASIX [Concomitant]
     Active Substance: FUROSEMIDE
     Dosage: 20 MG
     Route: 065
     Dates: start: 20200620, end: 20200620
  47. LASIX [Concomitant]
     Active Substance: FUROSEMIDE
     Dosage: 40 MG
     Route: 065
     Dates: start: 20200622, end: 20200622
  48. GLUCOPHAGE [Concomitant]
     Active Substance: METFORMIN HYDROCHLORIDE
     Indication: TYPE 2 DIABETES MELLITUS
     Dosage: UNK
     Route: 065
     Dates: start: 20200613, end: 20200614
  49. MIRALAX [Concomitant]
     Active Substance: POLYETHYLENE GLYCOL 3350
     Indication: PROPHYLAXIS
     Dosage: UNK
     Route: 065
     Dates: start: 20200624, end: 20200629
  50. BLINDED CANAKINUMAB [Suspect]
     Active Substance: CANAKINUMAB
     Indication: COVID-19 PNEUMONIA
     Dosage: CODE NOT BROKEN
     Route: 042
     Dates: start: 20200618
  51. ZEMURON [Suspect]
     Active Substance: ROCURONIUM BROMIDE
     Indication: VENTILATION PERFUSION MISMATCH
     Dosage: STRENGTH: 400 MG SODIUM CHLORIDE 0.9% 100 ML INFUSION
     Route: 041
     Dates: start: 20200620
  52. HUMULIN R [Concomitant]
     Active Substance: INSULIN HUMAN
     Dosage: UNK, STRENGTH: 100 UNITS IN SODIUM CHLORIDE
     Route: 065
     Dates: start: 20200619
  53. COLACE [Concomitant]
     Active Substance: DOCUSATE SODIUM
     Dosage: 200 MG
     Route: 065
     Dates: start: 20200624, end: 20200627
  54. SENOKOT [Concomitant]
     Active Substance: SENNOSIDES
     Indication: LAXATIVE SUPPORTIVE CARE
     Dosage: 8.6 MG TABLET
     Route: 065
     Dates: start: 20200620, end: 20200620
  55. VERSED [Concomitant]
     Active Substance: MIDAZOLAM HYDROCHLORIDE
     Dosage: 4 MG
     Route: 065
     Dates: start: 20200622, end: 20200628
  56. CELESTONE [Concomitant]
     Active Substance: BETAMETHASONE
     Indication: COVID-19 PNEUMONIA
  57. XYLOCAINE [Concomitant]
     Active Substance: LIDOCAINE HYDROCHLORIDE
     Indication: LOCAL ANAESTHESIA
     Dosage: UNK
     Route: 065
     Dates: start: 20200619, end: 20200619
  58. DIPRIVAN [Suspect]
     Active Substance: PROPOFOL
     Indication: RESPIRATORY FAILURE
     Dosage: UNK
     Route: 065
     Dates: start: 20200620, end: 20200620
  59. DIPRIVAN [Suspect]
     Active Substance: PROPOFOL
     Dosage: STRENGTH: 100 MG IN 100 ML INFUSION
     Route: 041
     Dates: start: 20200620, end: 20200622
  60. MAXIPIME [Concomitant]
     Active Substance: CEFEPIME HYDROCHLORIDE
     Indication: COVID-19 PNEUMONIA
     Dosage: STRENGTH: 2 G IN DEXTROSE 5% 50 ML IVPB PREMIX
     Route: 042
     Dates: start: 20200617, end: 20200621
  61. LANTUS [Concomitant]
     Active Substance: INSULIN GLARGINE
     Indication: TYPE 2 DIABETES MELLITUS
     Dosage: UNK, 100 UNIT/ML
     Route: 065
     Dates: start: 20200617, end: 20200617
  62. MERREM [Concomitant]
     Active Substance: MEROPENEM
     Indication: PNEUMONIA
     Dosage: UNK, STRENGTH: 1 G IN SODIUM CHLORIDE 0.9% 50ML IVPB PREMIX
     Route: 065
     Dates: start: 20200621, end: 20200623
  63. PRENATAL [Concomitant]
     Active Substance: VITAMINS
     Indication: PREGNANCY
     Dosage: UNK
     Route: 048
     Dates: start: 20200619
  64. INDOCIN [Concomitant]
     Active Substance: INDOMETHACIN
     Indication: PYREXIA
     Dosage: 100 MG
     Route: 065
     Dates: start: 20200622, end: 20200622
  65. MAGNESIUM SULFATE. [Concomitant]
     Active Substance: MAGNESIUM SULFATE
     Dosage: 4 G IN 100 ML IVPB PREMIX
     Route: 065
     Dates: start: 20200618, end: 20200618
  66. ZEMURON [Suspect]
     Active Substance: ROCURONIUM BROMIDE
     Dosage: 400 MG
     Route: 065
     Dates: start: 20200620, end: 20200621
  67. NOVOLOG [Concomitant]
     Active Substance: INSULIN ASPART
     Dosage: 100 UNITS/ML INJECTION 68 UNITS AND 100 UNITS/ML INJECTION 82 UNITS
     Route: 065
     Dates: start: 20200613, end: 20200614
  68. SODIUM BICARBONATE. [Concomitant]
     Active Substance: SODIUM BICARBONATE
     Indication: COVID-19 PNEUMONIA
     Dosage: UNK, STRENGTH: 150 MEQ IN STERILE WATER 1,000 ML INFUSION
     Route: 065
     Dates: start: 20200617, end: 20200618
  69. TYLENOL [Concomitant]
     Active Substance: ACETAMINOPHEN
     Indication: PYREXIA
     Dosage: 1000 MG
     Route: 065
     Dates: start: 20200622, end: 20200624
  70. SENOKOT [Concomitant]
     Active Substance: SENNOSIDES
     Dosage: 10 ML SYRUP
     Route: 048
     Dates: start: 20200621, end: 20200629
  71. ZOSYN [Concomitant]
     Active Substance: PIPERACILLIN SODIUM\TAZOBACTAM SODIUM
     Indication: PNEUMONIA
     Dosage: UNK
     Route: 065
     Dates: start: 20200625, end: 20200626
  72. ANECTINE [Concomitant]
     Active Substance: SUCCINYLCHOLINE CHLORIDE
     Indication: PARALYSIS
     Dosage: UNK
     Route: 065
     Dates: start: 20200620, end: 20200620

REACTIONS (1)
  - Hypotension [Recovered/Resolved]

NARRATIVE: CASE EVENT DATE: 20200620
